FAERS Safety Report 23996653 (Version 2)
Quarter: 2024Q3

REPORT INFORMATION
  Report Type: Spontaneous
  Country: RO (occurrence: RO)
  Receive Date: 20240620
  Receipt Date: 20240705
  Transmission Date: 20241017
  Serious: Yes (Other)
  Sender: TEVA
  Company Number: RO-TEVA-VS-3210125

PATIENT
  Age: 25 Year
  Sex: Female

DRUGS (1)
  1. PROGESTERONE [Suspect]
     Active Substance: PROGESTERONE
     Indication: Supplementation therapy
     Route: 065

REACTIONS (2)
  - Gallbladder enlargement [Recovered/Resolved]
  - Maternal exposure during pregnancy [Unknown]
